FAERS Safety Report 4854931-9 (Version None)
Quarter: 2005Q4

REPORT INFORMATION
  Report Type: 
  Country: None (occurrence: None)
  Receive Date: 20051213
  Receipt Date: 20051122
  Transmission Date: 20060501
  Serious: Yes (Hospitalization)
  Sender: FDA-Public Use
  Company Number: 6018749

PATIENT
  Age: 67 Year
  Sex: Female

DRUGS (5)
  1. LEVOTHYROXINE SODIUM [Suspect]
     Indication: HYPOTHYROIDISM
     Dosage: 25,000 MCG (25 MCG, 1 IN 1 D), ORAL
     Route: 048
     Dates: start: 20041201
  2. DEPAKENE [Suspect]
     Indication: EPILEPSY
     Dosage: 1000, 0 MG (500 MG, 2 IN 1 D), ORAL
     Route: 048
     Dates: start: 19991223
  3. PHENYTOIN [Suspect]
     Indication: EPILEPSY
     Dosage: 300,0000 MG (100 MG, 3 IN 1 D), ORAL
     Route: 048
     Dates: start: 20030602
  4. LAMICTAL [Suspect]
     Indication: EPILEPSY
     Dosage: 25,000 MG (25 MG, 1 IN 1 D) ORAL
     Route: 048
     Dates: start: 20020206
  5. URBANYL (CLOBAZAM) [Suspect]
     Indication: EPILEPSY
     Dosage: ORAL
     Route: 048

REACTIONS (9)
  - ALCOHOLISM [None]
  - BALANCE DISORDER [None]
  - CONVULSION [None]
  - GINGIVAL HYPERTROPHY [None]
  - HIRSUTISM [None]
  - HYPOCHLORAEMIA [None]
  - HYPONATRAEMIA [None]
  - HYPOTHYROIDISM [None]
  - PSYCHOMOTOR RETARDATION [None]
